FAERS Safety Report 21017595 (Version 1)
Quarter: 2022Q2

REPORT INFORMATION
  Report Type: Spontaneous
  Country: GB (occurrence: GB)
  Receive Date: 20220628
  Receipt Date: 20220628
  Transmission Date: 20220721
  Serious: Yes (Disabling, Other)
  Sender: FDA-Public Use
  Company Number: GB-MHRA-MED-202206230701482750-SRWFH

PATIENT
  Age: 49 Year
  Sex: Female

DRUGS (1)
  1. PRAMIPEXOLE [Suspect]
     Active Substance: PRAMIPEXOLE
     Indication: Restless legs syndrome
     Dosage: 0.52 MILLIGRAM, PM (0.52MG AT NIGHT)
     Route: 065

REACTIONS (2)
  - Dependence [Not Recovered/Not Resolved]
  - Medication error [Unknown]
